FAERS Safety Report 8922825 (Version 1)
Quarter: 2012Q4

REPORT INFORMATION
  Report Type: 
  Country: US (occurrence: US)
  Receive Date: 20121125
  Receipt Date: 20121125
  Transmission Date: 20130627
  Serious: Yes (Other)
  Sender: FDA-Public Use
  Company Number: US-BAYER-2012-119885

PATIENT
  Age: 22 Year
  Sex: Female

DRUGS (1)
  1. MIRENA [Suspect]
     Indication: CONTRACEPTION
     Dosage: 20 mcg/24hr, CONT
     Route: 015
     Dates: start: 20120712, end: 20121109

REACTIONS (8)
  - Vaginal haemorrhage [None]
  - Circulatory collapse [None]
  - Loss of consciousness [None]
  - Hypotension [None]
  - Face injury [None]
  - Mood swings [Not Recovered/Not Resolved]
  - Anxiety [Not Recovered/Not Resolved]
  - Acne [None]
